FAERS Safety Report 14251816 (Version 1)
Quarter: 2017Q4

REPORT INFORMATION
  Report Type: Spontaneous
  Country: JP (occurrence: JP)
  Receive Date: 20171205
  Receipt Date: 20171205
  Transmission Date: 20180321
  Serious: Yes (Other)
  Sender: FDA-Public Use
  Company Number: JP-JNJFOC-20171101590

PATIENT
  Age: 64 Year
  Sex: Female

DRUGS (33)
  1. TADALAFIL [Concomitant]
     Active Substance: TADALAFIL
     Route: 065
  2. PREDNISOLONE. [Concomitant]
     Active Substance: PREDNISOLONE
     Route: 065
  3. ELDECALCITOL [Concomitant]
     Active Substance: ELDECALCITOL
     Route: 065
  4. AMOXICILLIN AND CLAVULANATE POTASSIUM [Concomitant]
     Active Substance: AMOXICILLIN\CLAVULANATE POTASSIUM
     Route: 065
  5. CEFTRIAXONE. [Suspect]
     Active Substance: CEFTRIAXONE
     Indication: PNEUMONIA
     Route: 042
     Dates: start: 20160413, end: 20160414
  6. REBAMIPIDE [Concomitant]
     Active Substance: REBAMIPIDE
     Route: 065
  7. SENNOSIDE [Concomitant]
     Active Substance: SENNOSIDES
     Route: 065
  8. ZOSYN [Suspect]
     Active Substance: PIPERACILLIN SODIUM\TAZOBACTAM SODIUM
     Indication: PNEUMONIA
     Route: 042
     Dates: start: 20160415, end: 20160425
  9. FUROSEMIDE. [Suspect]
     Active Substance: FUROSEMIDE
     Indication: RIGHT VENTRICULAR FAILURE
     Route: 042
     Dates: start: 20160414, end: 20160419
  10. EPRAZINONE [Concomitant]
     Active Substance: EPRAZINONE
     Indication: PNEUMONIA
     Route: 065
     Dates: start: 20160413
  11. CEFPODOXIME PROXETIL. [Concomitant]
     Active Substance: CEFPODOXIME PROXETIL
     Indication: PNEUMONIA
     Route: 065
     Dates: start: 20160409
  12. FERROUS SODIUM CITRATE [Concomitant]
     Active Substance: SODIUM FERROUS CITRATE
     Indication: ANAEMIA
     Route: 048
     Dates: start: 20160314, end: 20160410
  13. RABEPRAZOLE [Concomitant]
     Active Substance: RABEPRAZOLE
     Route: 065
  14. NIFEDIPINE. [Concomitant]
     Active Substance: NIFEDIPINE
     Route: 065
  15. FUROSEMIDE. [Suspect]
     Active Substance: FUROSEMIDE
     Indication: RIGHT VENTRICULAR FAILURE
     Route: 042
     Dates: start: 20160430, end: 20160502
  16. TEMOCAPRIL [Concomitant]
     Active Substance: TEMOCAPRIL
     Route: 065
  17. BERAPROST [Concomitant]
     Active Substance: BERAPROST
     Route: 065
  18. CRAVIT [Suspect]
     Active Substance: LEVOFLOXACIN
     Indication: PNEUMONIA
     Route: 048
     Dates: start: 20160413, end: 20160418
  19. FUROSEMIDE. [Suspect]
     Active Substance: FUROSEMIDE
     Indication: RIGHT VENTRICULAR FAILURE
     Route: 042
     Dates: start: 20160422, end: 20160423
  20. FERROUS SODIUM CITRATE [Concomitant]
     Active Substance: SODIUM FERROUS CITRATE
     Indication: ANAEMIA
     Route: 048
     Dates: start: 20160223, end: 20160313
  21. LEVOMEPROMAZINE [Concomitant]
     Active Substance: LEVOMEPROMAZINE
     Route: 065
  22. OPSUMIT [Suspect]
     Active Substance: MACITENTAN
     Indication: PULMONARY ARTERIAL HYPERTENSION
     Route: 048
     Dates: start: 20160218
  23. TRANEXAMIC ACID. [Concomitant]
     Active Substance: TRANEXAMIC ACID
     Indication: PNEUMONIA
     Route: 065
     Dates: start: 20160409
  24. ZOLPIDEM [Concomitant]
     Active Substance: ZOLPIDEM\ZOLPIDEM TARTRATE
     Route: 065
  25. ETIZOLAM [Concomitant]
     Active Substance: ETIZOLAM
     Route: 065
  26. CRAVIT [Suspect]
     Active Substance: LEVOFLOXACIN
     Indication: PNEUMONIA
     Route: 048
     Dates: start: 20160416, end: 20160425
  27. FUROSEMIDE. [Suspect]
     Active Substance: FUROSEMIDE
     Indication: RIGHT VENTRICULAR FAILURE
     Route: 042
     Dates: start: 20160424, end: 20160425
  28. AMBROXOL [Concomitant]
     Active Substance: AMBROXOL
     Indication: PNEUMONIA
     Route: 065
     Dates: start: 20160409
  29. FERROUS SODIUM CITRATE [Concomitant]
     Active Substance: SODIUM FERROUS CITRATE
     Indication: ANAEMIA
     Route: 048
     Dates: start: 20160411
  30. SULFAMETHOXAZOLE W/TRIMETHOPRIM [Concomitant]
     Active Substance: SULFAMETHOXAZOLE\TRIMETHOPRIM
     Indication: PNEUMOCYSTIS JIROVECII PNEUMONIA
     Route: 048
     Dates: start: 2013
  31. ESTAZOLAM. [Concomitant]
     Active Substance: ESTAZOLAM
     Route: 065
  32. AZOSEMIDE [Concomitant]
     Active Substance: AZOSEMIDE
     Route: 065
  33. DOBUPUM [Concomitant]
     Active Substance: DOBUTAMINE HYDROCHLORIDE
     Route: 065

REACTIONS (4)
  - Frequent bowel movements [Recovered/Resolved]
  - Nausea [Recovered/Resolved]
  - Faeces soft [Recovering/Resolving]
  - Hypokalaemia [Recovered/Resolved]

NARRATIVE: CASE EVENT DATE: 20160417
